FAERS Safety Report 25497399 (Version 3)
Quarter: 2025Q4

REPORT INFORMATION
  Report Type: Report from Study
  Country: EU (occurrence: EU)
  Receive Date: 20250701
  Receipt Date: 20251215
  Transmission Date: 20260118
  Serious: Yes (Other)
  Sender: TAKEDA
  Company Number: EU-TAKEDA-2025TUS046578

PATIENT
  Age: 60 Year
  Sex: Male

DRUGS (9)
  1. MARIBAVIR [Suspect]
     Active Substance: MARIBAVIR
     Indication: Cytomegalovirus infection
     Dosage: UNK
  2. VALGANCICLOVIR [Suspect]
     Active Substance: VALGANCICLOVIR
     Indication: Cytomegalovirus infection
     Dosage: 900 MILLIGRAM, BID
  3. VALGANCICLOVIR [Suspect]
     Active Substance: VALGANCICLOVIR
     Dosage: 900 MILLIGRAM
  4. LETERMOVIR [Concomitant]
     Active Substance: LETERMOVIR
     Indication: Cytomegalovirus infection
     Dosage: UNK
  5. FOSCARNET [Concomitant]
     Active Substance: FOSCARNET
     Indication: Cytomegalovirus infection
     Dosage: UNK
  6. FOSCARNET [Concomitant]
     Active Substance: FOSCARNET
     Indication: Renal failure
  7. EVEROLIMUS [Concomitant]
     Active Substance: EVEROLIMUS
     Indication: Cytomegalovirus infection
     Dosage: UNK
  8. MYCOPHENOLIC ACID [Concomitant]
     Active Substance: MYCOPHENOLIC ACID
     Indication: Cytomegalovirus infection
     Dosage: UNK
  9. TACROLIMUS [Concomitant]
     Active Substance: TACROLIMUS
     Indication: Cytomegalovirus infection
     Dosage: UNK

REACTIONS (3)
  - Drug resistance [Recovered/Resolved]
  - Off label use [Recovered/Resolved]
  - Drug resistance mutation [Recovered/Resolved]
